FAERS Safety Report 9982786 (Version 1)
Quarter: 2014Q1

REPORT INFORMATION
  Report Type: Report from Study
  Country: US (occurrence: US)
  Receive Date: 20140307
  Receipt Date: 20140307
  Transmission Date: 20141002
  Serious: No
  Sender: FDA-Public Use
  Company Number: US-ABBVIE-13P-163-1180987-00

PATIENT
  Sex: Female
  Weight: 72.64 kg

DRUGS (5)
  1. HUMIRA [Suspect]
     Indication: RHEUMATOID ARTHRITIS
     Dates: start: 2010
  2. HUMIRA [Suspect]
     Indication: COLITIS ULCERATIVE
  3. LIALDA [Concomitant]
     Indication: COLITIS ULCERATIVE
  4. ROPINIROLE [Concomitant]
     Indication: RESTLESS LEGS SYNDROME
  5. ALPRAZOLAM [Concomitant]
     Indication: ANXIETY

REACTIONS (2)
  - Local swelling [Not Recovered/Not Resolved]
  - Balance disorder [Not Recovered/Not Resolved]
